FAERS Safety Report 12322780 (Version 1)
Quarter: 2016Q2

REPORT INFORMATION
  Report Type: Spontaneous
  Country: None (occurrence: None)
  Receive Date: 20160429
  Receipt Date: 20160429
  Transmission Date: 20160815
  Serious: Yes (Other)
  Sender: FDA-Public Use
  Company Number: None

PATIENT
  Age: 50 Year
  Sex: Male

DRUGS (1)
  1. TACROLIMUS. [Suspect]
     Active Substance: TACROLIMUS
     Indication: RENAL TRANSPLANT

REACTIONS (8)
  - Insomnia [None]
  - Drug interaction [None]
  - Hyperkalaemia [None]
  - Headache [None]
  - Toxicity to various agents [None]
  - Immunosuppressant drug level increased [None]
  - Acute kidney injury [None]
  - Abdominal pain upper [None]

NARRATIVE: CASE EVENT DATE: 20141231
